FAERS Safety Report 26170042 (Version 1)
Quarter: 2025Q4

REPORT INFORMATION
  Report Type: Report from Study
  Country: US (occurrence: US)
  Receive Date: 20251217
  Receipt Date: 20251217
  Transmission Date: 20260117
  Serious: No
  Sender: DR REDDYS
  Company Number: US-DRL-USA-USA/2025/11/018084

PATIENT
  Age: 25 Year

DRUGS (1)
  1. ACCUTANE [Suspect]
     Active Substance: ISOTRETINOIN
     Indication: Product used for unknown indication
     Route: 065
     Dates: start: 20251013, end: 20251119

REACTIONS (4)
  - Dry skin [Unknown]
  - Product use issue [Unknown]
  - Skin exfoliation [Unknown]
  - Scab [Unknown]

NARRATIVE: CASE EVENT DATE: 20251119
